FAERS Safety Report 5873256-6 (Version None)
Quarter: 2008Q3

REPORT INFORMATION
  Report Type: 
  Country: None (occurrence: None)
  Receive Date: 20080908
  Receipt Date: 20080826
  Transmission Date: 20090109
  Serious: Yes (Other)
  Sender: FDA-Public Use
  Company Number: FR-AMGEN-US306005

PATIENT
  Age: 56 Year
  Sex: Male

DRUGS (4)
  1. ENBREL [Suspect]
     Indication: PSORIATIC ARTHROPATHY
     Route: 058
     Dates: start: 20030301
  2. ENBREL [Suspect]
     Indication: PSORIASIS
  3. CALCIPOTRIENE [Concomitant]
     Dosage: NOT SPECIFIED
     Route: 061
  4. CLOBETASOL PROPIONATE [Concomitant]
     Dosage: NOT SPECIFIED
     Route: 061

REACTIONS (2)
  - DEPRESSION [None]
  - PENIS CARCINOMA [None]
